FAERS Safety Report 5393007-1 (Version None)
Quarter: 2007Q3

REPORT INFORMATION
  Report Type: 
  Country: None (occurrence: None)
  Receive Date: 20070719
  Receipt Date: 20070709
  Transmission Date: 20080115
  Serious: No
  Sender: FDA-Public Use
  Company Number: TPA2007A01469

PATIENT
  Age: 53 Year
  Weight: 60.782 kg

DRUGS (2)
  1. ROZEREM [Suspect]
     Indication: INSOMNIA
     Dosage: 8 MG, QHS, PER ORAL
     Route: 048
     Dates: start: 20050101
  2. SYNTHROID [Concomitant]

REACTIONS (3)
  - INITIAL INSOMNIA [None]
  - RECURRENT CANCER [None]
  - THYROID CANCER [None]
